FAERS Safety Report 4964483-0 (Version None)
Quarter: 2006Q1

REPORT INFORMATION
  Report Type: 
  Country: None (occurrence: None)
  Receive Date: 20060331
  Receipt Date: 20060321
  Transmission Date: 20060701
  Serious: Yes (Death, Hospitalization, Other)
  Sender: FDA-Public Use
  Company Number: US_0508120856

PATIENT
  Age: 82 Year
  Sex: Female
  Weight: 81.6 kg

DRUGS (20)
  1. ZYPREXA [Suspect]
     Dosage: 2.5 MG, DAILY (1/D), ORAL; 5 MG, EACH EVENING, ORAL; 2.5 MG, EACH EVENING, ORAL; 10 MG, EACH EVENING
     Route: 048
     Dates: start: 19990624, end: 19990810
  2. ZYPREXA [Suspect]
     Dosage: 2.5 MG, DAILY (1/D), ORAL; 5 MG, EACH EVENING, ORAL; 2.5 MG, EACH EVENING, ORAL; 10 MG, EACH EVENING
     Route: 048
     Dates: start: 19990810, end: 20020206
  3. ZYPREXA [Suspect]
     Dosage: 2.5 MG, DAILY (1/D), ORAL; 5 MG, EACH EVENING, ORAL; 2.5 MG, EACH EVENING, ORAL; 10 MG, EACH EVENING
     Route: 048
     Dates: start: 20020206, end: 20030731
  4. ZYPREXA [Suspect]
     Dosage: 2.5 MG, DAILY (1/D), ORAL; 5 MG, EACH EVENING, ORAL; 2.5 MG, EACH EVENING, ORAL; 10 MG, EACH EVENING
     Route: 048
     Dates: start: 20030731, end: 20030807
  5. COREG [Concomitant]
  6. DESYREL [Concomitant]
  7. POTASSIUM CHLORIDE [Concomitant]
  8. LASIX (FUROSEMDIE, FUROSEMIDE SODIUM) [Concomitant]
  9. NITROGLYCERIN TRANSDERMAL SYSTEM (GLYCERYL TRINITRATE) [Concomitant]
  10. COLACE (DOCUSATE SODIUM) [Concomitant]
  11. PREVACID [Concomitant]
  12. CATAFLAM [Concomitant]
  13. NEURONTIN [Concomitant]
  14. FLEXERIL [Concomitant]
  15. CALCIUM WITH VITAMIN D (CALCIUM PHOSPHATE, CALCIUM SODIUM LACTATE, ERG [Concomitant]
  16. NORVASC [Concomitant]
  17. REGLAN [Concomitant]
  18. PROVERA [Concomitant]
  19. ASPIRIN [Concomitant]
  20. LORTAB [Concomitant]

REACTIONS (29)
  - ANAEMIA [None]
  - ANOREXIA [None]
  - BILE DUCT STONE [None]
  - BLEEDING ANOVULATORY [None]
  - CARDIAC FAILURE CONGESTIVE [None]
  - CARDIO-RESPIRATORY ARREST [None]
  - CARDIO-RESPIRATORY DISTRESS [None]
  - CHRONIC OBSTRUCTIVE PULMONARY DISEASE [None]
  - CONDITION AGGRAVATED [None]
  - CONFUSIONAL STATE [None]
  - DECREASED APPETITE [None]
  - DEHYDRATION [None]
  - DEPRESSED LEVEL OF CONSCIOUSNESS [None]
  - DIABETES MELLITUS [None]
  - DYSARTHRIA [None]
  - ESCHERICHIA SEPSIS [None]
  - FLUID OVERLOAD [None]
  - GASTROINTESTINAL HAEMORRHAGE [None]
  - GENERAL PHYSICAL HEALTH DETERIORATION [None]
  - HYPERLIPIDAEMIA [None]
  - HYPERTENSIVE HEART DISEASE [None]
  - HYPOKALAEMIA [None]
  - PANCREATIC ABSCESS [None]
  - PANCREATIC PSEUDOCYST [None]
  - PANCREATITIS ACUTE [None]
  - PNEUMONIA [None]
  - REFUSAL OF TREATMENT BY PATIENT [None]
  - RENAL FAILURE ACUTE [None]
  - VULVAL DISORDER [None]
